FAERS Safety Report 10303186 (Version 2)
Quarter: 2014Q4

REPORT INFORMATION
  Report Type: Spontaneous
  Country: US (occurrence: None)
  Receive Date: 20140710
  Receipt Date: 20141023
  Transmission Date: 20150528
  Serious: Yes (Other)
  Sender: FDA-Public Use
  Company Number: 2014-US-007828

PATIENT
  Age: 52 Year
  Sex: Female

DRUGS (8)
  1. XYREM [Suspect]
     Active Substance: SODIUM OXYBATE
     Indication: FIBROMYALGIA
     Route: 048
     Dates: start: 201105, end: 2011
  2. METHOTREXATE [Concomitant]
     Active Substance: METHOTREXATE
  3. HORIZANT [Concomitant]
     Active Substance: GABAPENTIN ENACARBIL
  4. DEPAKOTE [Concomitant]
     Active Substance: DIVALPROEX SODIUM
  5. XYREM [Suspect]
     Active Substance: SODIUM OXYBATE
     Indication: INSOMNIA
     Route: 048
     Dates: start: 201105, end: 2011
  6. IMITREX [Concomitant]
     Active Substance: SUMATRIPTAN\SUMATRIPTAN SUCCINATE
  7. ALL OTHER THERAPEUTIC PRODUCTS (PHENAAN) [Concomitant]
  8. ALL OTHER THERAPEUTIC PRODUCTS (HYPROCO) [Concomitant]

REACTIONS (13)
  - Sleep apnoea syndrome [None]
  - DiGeorge^s syndrome [None]
  - Polyarthritis [None]
  - Myositis [None]
  - Restless legs syndrome [None]
  - Obesity [None]
  - Pain [None]
  - Dystonia [None]
  - Thrombophlebitis [None]
  - Off label use [None]
  - Rheumatoid arthritis [None]
  - Type 2 diabetes mellitus [None]
  - Myalgia [None]

NARRATIVE: CASE EVENT DATE: 20120215
